FAERS Safety Report 10969181 (Version 2)
Quarter: 2015Q2

REPORT INFORMATION
  Report Type: Report from Study
  Country: RU (occurrence: RU)
  Receive Date: 20150331
  Receipt Date: 20150604
  Transmission Date: 20150821
  Serious: Yes (Hospitalization)
  Sender: FDA-Public Use
  Company Number: PHHO2014RU014433

PATIENT
  Age: 40 Year
  Sex: Male
  Weight: 109 kg

DRUGS (4)
  1. AKRIDERM GENTA [Concomitant]
     Indication: DERMATITIS ATOPIC
     Route: 065
     Dates: start: 20110426
  2. BARALGIN [Concomitant]
     Active Substance: METAMIZOLE SODIUM
     Indication: RENAL COLIC
     Route: 065
     Dates: start: 20121029
  3. OMNIC [Concomitant]
     Active Substance: TAMSULOSIN HYDROCHLORIDE
     Indication: CALCULUS URETERIC
     Route: 065
     Dates: start: 20121110
  4. GILENYA [Suspect]
     Active Substance: FINGOLIMOD HYDROCHLORIDE
     Indication: MULTIPLE SCLEROSIS
     Dosage: 0.5 MG, QD
     Route: 048
     Dates: start: 20110517

REACTIONS (2)
  - Gastroduodenitis [Recovered/Resolved]
  - Biliary dyskinesia [Recovered/Resolved]

NARRATIVE: CASE EVENT DATE: 20140418
